FAERS Safety Report 5587629-2 (Version None)
Quarter: 2008Q1

REPORT INFORMATION
  Report Type: 
  Country: None (occurrence: None)
  Receive Date: 20080110
  Receipt Date: 20080108
  Transmission Date: 20080703
  Serious: Yes (Other)
  Sender: FDA-Public Use
  Company Number: BE-MERCK-0712BEL00031

PATIENT
  Age: 67 Year
  Sex: Male
  Weight: 95 kg

DRUGS (6)
  1. ZOCOR [Suspect]
     Indication: HYPERCHOLESTEROLAEMIA
     Route: 048
  2. TRITACE [Concomitant]
     Indication: HYPERTENSION
     Route: 048
     Dates: start: 20000109
  3. CATAPRES [Concomitant]
     Indication: HYPERTENSION
     Route: 048
     Dates: start: 19900101
  4. ALDACTAZIDE [Concomitant]
     Indication: HYPERTENSION
     Route: 048
     Dates: start: 19890101
  5. SULAR [Concomitant]
     Indication: HYPERTENSION
     Route: 048
     Dates: start: 20071217
  6. NOBITEN [Concomitant]
     Indication: HYPERTENSION
     Route: 048
     Dates: start: 20060120

REACTIONS (1)
  - DIABETES MELLITUS [None]
